FAERS Safety Report 19182364 (Version 2)
Quarter: 2021Q2

REPORT INFORMATION
  Report Type: Other
  Country: US (occurrence: US)
  Receive Date: 20210427
  Receipt Date: 20210602
  Transmission Date: 20210717
  Serious: Yes (Hospitalization, Other)
  Sender: FDA-Public Use
  Company Number: US-ROCHE-2817424

PATIENT
  Sex: Male

DRUGS (1)
  1. ESBRIET [Suspect]
     Active Substance: PIRFENIDONE
     Indication: IDIOPATHIC PULMONARY FIBROSIS
     Dosage: 1 TABLET BY MOUTH 3 TIMES A DAY WITH MEAL
     Route: 048

REACTIONS (6)
  - Hypotension [Unknown]
  - Ventricular arrhythmia [Unknown]
  - Cardiomegaly [Unknown]
  - Cardiac disorder [Unknown]
  - Ventricular extrasystoles [Unknown]
  - Fluid retention [Unknown]
